FAERS Safety Report 15730814 (Version 6)
Quarter: 2019Q2

REPORT INFORMATION
  Report Type: Report from Study
  Country: US (occurrence: US)
  Receive Date: 20181217
  Receipt Date: 20190530
  Transmission Date: 20190711
  Serious: Yes (Life-Threatening, Other)
  Sender: FDA-Public Use
  Company Number: US-SA-2018SA341386

PATIENT
  Age: 63 Year
  Sex: Female

DRUGS (1)
  1. TERIFLUNOMIDE. [Suspect]
     Active Substance: TERIFLUNOMIDE
     Indication: MULTIPLE SCLEROSIS
     Dosage: 14 MG, QD
     Route: 048
     Dates: end: 2018

REACTIONS (6)
  - Suicidal ideation [Recovered/Resolved]
  - Dyspnoea [Recovered/Resolved]
  - Weight increased [Unknown]
  - Throat tightness [Recovered/Resolved]
  - Diarrhoea [Unknown]
  - Gastric disorder [Unknown]
